FAERS Safety Report 24900688 (Version 3)
Quarter: 2025Q1

REPORT INFORMATION
  Report Type: Report from Study
  Country: CO (occurrence: CO)
  Receive Date: 20250129
  Receipt Date: 20250325
  Transmission Date: 20250409
  Serious: Yes (Hospitalization, Other)
  Sender: AMGEN
  Company Number: CO-AMGEN-COLSL2024214115

PATIENT
  Age: 66 Year
  Sex: Female

DRUGS (11)
  1. VECTIBIX [Suspect]
     Active Substance: PANITUMUMAB
     Indication: Colorectal cancer metastatic
     Dosage: 330 MILLIGRAM, Q2WK, BIWEEKLY
     Route: 040
     Dates: start: 20240902, end: 20241226
  2. VECTIBIX [Suspect]
     Active Substance: PANITUMUMAB
     Route: 040
     Dates: start: 202501
  3. VECTIBIX [Suspect]
     Active Substance: PANITUMUMAB
     Dosage: 330 MILLIGRAM, Q2WK BIWEEKLY
     Route: 040
     Dates: start: 20250220, end: 20250306
  4. IRINOTECAN [Concomitant]
     Active Substance: IRINOTECAN
     Indication: Colorectal cancer metastatic
     Route: 040
  5. LEUCOVORIN [Concomitant]
     Active Substance: LEUCOVORIN\LEUCOVORIN CALCIUM
     Indication: Colorectal cancer metastatic
     Route: 040
  6. FLUOROURACIL [Concomitant]
     Active Substance: FLUOROURACIL
     Indication: Colorectal cancer metastatic
     Route: 040
  7. LOPERAMIDE [Concomitant]
     Active Substance: LOPERAMIDE
     Dosage: 2 MILLIGRAM, Q8H, IF DIARRHEA
     Route: 048
  8. DEXAMETHASONE [Concomitant]
     Active Substance: DEXAMETHASONE
  9. DIPHENHYDRAMINE [Concomitant]
     Active Substance: DIPHENHYDRAMINE
  10. ONDANSETRON [Concomitant]
     Active Substance: ONDANSETRON
     Dosage: 8 MILLIGRAM, Q8H, IF NAUSEA OR EMESIS
     Route: 048
  11. ATROPINE [Concomitant]
     Active Substance: ATROPINE

REACTIONS (10)
  - Urinary tract infection [Not Recovered/Not Resolved]
  - Neuropathy peripheral [Unknown]
  - Burning sensation [Not Recovered/Not Resolved]
  - Skin lesion [Not Recovered/Not Resolved]
  - Rash [Not Recovered/Not Resolved]
  - Dry skin [Not Recovered/Not Resolved]
  - Erythema [Not Recovered/Not Resolved]
  - Acne [Not Recovered/Not Resolved]
  - Mucosal inflammation [Not Recovered/Not Resolved]
  - Asthenia [Unknown]

NARRATIVE: CASE EVENT DATE: 20240101
